FAERS Safety Report 5381324-0 (Version None)
Quarter: 2007Q2

REPORT INFORMATION
  Report Type: 
  Country: None (occurrence: None)
  Receive Date: 20070628
  Receipt Date: 20070313
  Transmission Date: 20071010
  Serious: No
  Sender: FDA-Public Use
  Company Number: APP200700034

PATIENT
  Sex: Female

DRUGS (4)
  1. SENSORCAINE [Suspect]
     Indication: SPINAL ANAESTHESIA
     Dosage: (9.75 MG, DOSE WAS REPEATED ONE TIME), SPINAL
     Route: 037
  2. MORPHINE PRESERVATIVE FREE (MORPHINE) [Concomitant]
  3. FENTANYL [Concomitant]
  4. EPINEPHRINE [Concomitant]

REACTIONS (1)
  - DRUG EFFECT DECREASED [None]
